FAERS Safety Report 4478208-9 (Version None)
Quarter: 2004Q3

REPORT INFORMATION
  Report Type: 
  Country: None (occurrence: None)
  Receive Date: 20040923
  Receipt Date: 20040719
  Transmission Date: 20050211
  Serious: No
  Sender: FDA-Public Use
  Company Number: USA040671133

PATIENT
  Age: 79 Year
  Sex: Female
  Weight: 48 kg

DRUGS (7)
  1. FORTEO [Suspect]
     Indication: OSTEOPOROSIS
     Dosage: 20 UG/1 DAY
     Dates: start: 20040624
  2. EVISTA [Suspect]
     Dates: start: 20010101, end: 20040630
  3. CELEBREX [Concomitant]
  4. MULTIVITAMIN [Concomitant]
  5. ASPIRIN [Concomitant]
  6. PEPCID AC [Concomitant]
  7. CALTRATE + D [Concomitant]

REACTIONS (4)
  - BACK PAIN [None]
  - BONE DENSITY DECREASED [None]
  - NAUSEA [None]
  - PAIN [None]
